FAERS Safety Report 13523951 (Version 1)
Quarter: 2017Q2

REPORT INFORMATION
  Report Type: Spontaneous
  Country: US (occurrence: US)
  Receive Date: 20170508
  Receipt Date: 20170508
  Transmission Date: 20170830
  Serious: No
  Sender: FDA-Public Use
  Company Number: US-VIFOR (INTERNATIONAL) INC.-VIT-2017-00368

PATIENT
  Age: 76 Year
  Sex: Male

DRUGS (14)
  1. PREDNISONE. [Concomitant]
     Active Substance: PREDNISONE
  2. KIONEX [Concomitant]
     Active Substance: SODIUM POLYSTYRENE SULFONATE
  3. FENOFIBRATE. [Concomitant]
     Active Substance: FENOFIBRATE
  4. ALBUTEROL. [Concomitant]
     Active Substance: ALBUTEROL
  5. VELTASSA [Suspect]
     Active Substance: PATIROMER
     Indication: HYPERKALAEMIA
     Route: 065
     Dates: start: 20161209
  6. AZITHROMYCIN ANHYDROUS. [Concomitant]
     Active Substance: AZITHROMYCIN ANHYDROUS
  7. SODIUM BICARBONATE. [Concomitant]
     Active Substance: SODIUM BICARBONATE
  8. VELTASSA [Suspect]
     Active Substance: PATIROMER
     Dates: start: 20170111
  9. BISOPROLOL [Concomitant]
     Active Substance: BISOPROLOL
  10. ALLOPURINOL. [Concomitant]
     Active Substance: ALLOPURINOL
  11. ETACRYNIC ACID [Concomitant]
     Active Substance: ETHACRYNIC ACID
  12. CLAVULANATE POTASSIUM [Concomitant]
     Active Substance: CLAVULANATE POTASSIUM
  13. CIPROFLOXACIN. [Concomitant]
     Active Substance: CIPROFLOXACIN
  14. METHYLPRED [Concomitant]
     Active Substance: METHYLPREDNISOLONE

REACTIONS (6)
  - Malaise [Not Recovered/Not Resolved]
  - Constipation [Unknown]
  - Abdominal pain upper [Not Recovered/Not Resolved]
  - Abdominal discomfort [Unknown]
  - Drug dose omission [Recovered/Resolved]
  - Diarrhoea [Not Recovered/Not Resolved]

NARRATIVE: CASE EVENT DATE: 20161209
